FAERS Safety Report 16478628 (Version 1)
Quarter: 2019Q2

REPORT INFORMATION
  Report Type: Spontaneous
  Country: US (occurrence: US)
  Receive Date: 20190626
  Receipt Date: 20190626
  Transmission Date: 20190711
  Serious: No
  Sender: FDA-Public Use
  Company Number: US-ARRAY-2019-05764

PATIENT

DRUGS (3)
  1. ERBITUX [Concomitant]
     Active Substance: CETUXIMAB
     Indication: PRODUCT USED FOR UNKNOWN INDICATION
  2. BRAFTOVI [Suspect]
     Active Substance: ENCORAFENIB
     Indication: NEUROENDOCRINE TUMOUR
     Dosage: 300 MG, QD
     Route: 048
     Dates: start: 20190422
  3. MEKTOVI [Suspect]
     Active Substance: BINIMETINIB
     Indication: NEUROENDOCRINE TUMOUR
     Dosage: 45 MG, BID
     Route: 048
     Dates: start: 20190422

REACTIONS (3)
  - Rash [Unknown]
  - Hypoaesthesia [Unknown]
  - Product use in unapproved indication [Unknown]

NARRATIVE: CASE EVENT DATE: 20190422
